FAERS Safety Report 4871175-5 (Version None)
Quarter: 2005Q4

REPORT INFORMATION
  Report Type: 
  Country: None (occurrence: None)
  Receive Date: 20051229
  Receipt Date: 20051219
  Transmission Date: 20060501
  Serious: Yes (Hospitalization, Other)
  Sender: FDA-Public Use
  Company Number: EWC051046656

PATIENT
  Age: 60 Year
  Sex: Female

DRUGS (4)
  1. ZYPREXA [Suspect]
     Indication: DELUSION
     Dosage: SEE IMAGE
     Route: 048
     Dates: start: 20040819, end: 20041009
  2. ZYPREXA [Suspect]
     Indication: DELUSION
     Dosage: SEE IMAGE
     Route: 048
     Dates: start: 20041010, end: 20041021
  3. ZYPREXA [Suspect]
     Indication: DELUSION
     Dosage: SEE IMAGE
     Route: 048
     Dates: start: 20041021
  4. CISORDINOL /DEN/ (CLOPENTHIXOL HYDROCHLORIDE) [Concomitant]

REACTIONS (7)
  - BLOOD PRESSURE INCREASED [None]
  - CHEST PAIN [None]
  - CONVULSION [None]
  - DYSPNOEA [None]
  - NERVOUSNESS [None]
  - PRESCRIBED OVERDOSE [None]
  - SUPRAVENTRICULAR TACHYCARDIA [None]
